FAERS Safety Report 6601869-2 (Version None)
Quarter: 2010Q1

REPORT INFORMATION
  Report Type: 
  Country: None (occurrence: None)
  Receive Date: 20100225
  Receipt Date: 20100217
  Transmission Date: 20100710
  Serious: Yes (Hospitalization, Other)
  Sender: FDA-Public Use
  Company Number: CA-ABBOTT-10P-028-0627602-00

PATIENT
  Sex: Female
  Weight: 48.578 kg

DRUGS (6)
  1. HUMIRA [Suspect]
     Indication: RHEUMATOID ARTHRITIS
     Route: 058
     Dates: start: 20090715
  2. CELEBREX [Concomitant]
     Indication: ARTHRITIS
     Route: 048
  3. PARIET [Concomitant]
     Indication: GASTRIC DISORDER
     Route: 048
  4. GOLD [Concomitant]
     Indication: DRUG USE FOR UNKNOWN INDICATION
     Route: 050
  5. CALCIUM [Concomitant]
     Indication: MINERAL SUPPLEMENTATION
     Route: 048
  6. VITAMIN D [Concomitant]
     Indication: VITAMIN SUPPLEMENTATION
     Route: 048

REACTIONS (11)
  - ABDOMINAL PAIN UPPER [None]
  - BACK PAIN [None]
  - BACTERIAL TEST [None]
  - CHILLS [None]
  - COUGH [None]
  - HEADACHE [None]
  - INFLUENZA LIKE ILLNESS [None]
  - LOCALISED INTRAABDOMINAL FLUID COLLECTION [None]
  - PYREXIA [None]
  - SOMNOLENCE [None]
  - WEIGHT DECREASED [None]
